FAERS Safety Report 18464935 (Version 1)
Quarter: 2020Q4

REPORT INFORMATION
  Report Type: Not Available
  Country: SG (occurrence: SG)
  Receive Date: 20201104
  Receipt Date: 20201104
  Transmission Date: 20210114
  Serious: Yes (Life-Threatening, Hospitalization)
  Sender: FDA-Public Use
  Company Number: SG-AKORN-155625

PATIENT
  Sex: Male

DRUGS (1)
  1. GENTAMICIN SULFATE OPHTHALMIC SOLUTION [Suspect]
     Active Substance: GENTAMICIN SULFATE

REACTIONS (1)
  - Sepsis [Recovered/Resolved]
